FAERS Safety Report 4901508-2 (Version None)
Quarter: 2006Q1

REPORT INFORMATION
  Report Type: 
  Country: None (occurrence: None)
  Receive Date: 20060202
  Receipt Date: 20060127
  Transmission Date: 20060701
  Serious: Yes (Death, Hospitalization)
  Sender: FDA-Public Use
  Company Number: S05-USA-05002-01

PATIENT
  Age: 86 Year
  Sex: Female

DRUGS (2)
  1. NAMENDA [Suspect]
     Indication: DEMENTIA
     Dosage: 5 MG ONCE PO
     Route: 048
     Dates: start: 20051109, end: 20051109
  2. INFLUENZA IMMUNIZATION [Suspect]
     Indication: INFLUENZA IMMUNISATION
     Dates: start: 20051109, end: 20051109

REACTIONS (2)
  - CEREBROVASCULAR ACCIDENT [None]
  - HYPERCAPNIA [None]
